FAERS Safety Report 24024267 (Version 1)
Quarter: 2024Q2

REPORT INFORMATION
  Report Type: Report from Study
  Country: CA (occurrence: CA)
  Receive Date: 20240627
  Receipt Date: 20240627
  Transmission Date: 20240715
  Serious: No
  Sender: FDA-Public Use
  Company Number: CA-ROCHE-3579556

PATIENT
  Age: 74 Year
  Sex: Female

DRUGS (3)
  1. VABYSMO [Suspect]
     Active Substance: FARICIMAB\FARICIMAB-SVOA
     Indication: Retinal vein occlusion
     Route: 050
     Dates: start: 202311, end: 20240521
  2. EYLEA [Concomitant]
     Active Substance: AFLIBERCEPT
  3. OZURDEX [Concomitant]
     Active Substance: DEXAMETHASONE

REACTIONS (2)
  - No adverse event [Unknown]
  - Drug ineffective [Unknown]
